FAERS Safety Report 7863335-6 (Version None)
Quarter: 2011Q4

REPORT INFORMATION
  Report Type: 
  Country: None (occurrence: None)
  Receive Date: 20111027
  Receipt Date: 20101201
  Transmission Date: 20120403
  Serious: No
  Sender: FDA-Public Use
  Company Number: US-AMGEN-USASP2010007153

PATIENT
  Age: 57 Year
  Sex: Male
  Weight: 99.773 kg

DRUGS (13)
  1. ENBREL [Suspect]
     Indication: PRODUCT USED FOR UNKNOWN INDICATION
     Dosage: 50 MG, QWK
  2. GLUCOSAMINE + CHONDROITIN [Concomitant]
  3. FOLIC ACID [Concomitant]
     Dosage: 1 MG, UNK
  4. MULTIVITAMINICO C/HIERRO C-STRESS [Concomitant]
  5. METHOTREXATE [Concomitant]
     Dosage: 2.5 MG, UNK
  6. PRAVASTATIN [Concomitant]
     Dosage: 10 MG, UNK
  7. ENALAPRIL MALEATE [Concomitant]
     Dosage: 2.5 MG, UNK
  8. VITAMIN E                          /00110501/ [Concomitant]
     Dosage: 200 UNIT, UNK
  9. XANAX [Concomitant]
     Dosage: 0.5 MG, UNK
  10. PREDNISONE [Concomitant]
     Dosage: 5 MG, UNK
  11. PROZAC [Concomitant]
     Dosage: 20 MG, UNK
  12. HYDROCODONE BITARTRATE AND ACETAMINOPHEN [Concomitant]
     Dosage: 5 MG, UNK
  13. HYDROCODONE BITARTRATE AND ACETAMINOPHEN [Concomitant]
     Dosage: 500 MG, UNK

REACTIONS (1)
  - ORAL DISORDER [None]
